FAERS Safety Report 9048382 (Version 1)
Quarter: 2013Q1

REPORT INFORMATION
  Report Type: Spontaneous
  Country: US (occurrence: None)
  Receive Date: 20130130
  Receipt Date: 20130130
  Transmission Date: 20140127
  Serious: Yes (Life-Threatening, Hospitalization)
  Sender: FDA-Public Use
  Company Number: None

PATIENT
  Age: 67 Year
  Sex: Male
  Weight: 96.2 kg

DRUGS (2)
  1. VANCOMYCIN [Suspect]
     Indication: STAPHYLOCOCCAL INFECTION
     Route: 042
     Dates: start: 20121130, end: 20130114
  2. VANCOMYCIN [Suspect]
     Indication: EMPYEMA
     Route: 042
     Dates: start: 20121130, end: 20130114

REACTIONS (2)
  - Leukopenia [None]
  - Neutropenia [None]
